FAERS Safety Report 14577452 (Version 1)
Quarter: 2018Q1

REPORT INFORMATION
  Report Type: Spontaneous
  Country: US (occurrence: US)
  Receive Date: 20180226
  Receipt Date: 20180226
  Transmission Date: 20180509
  Serious: Yes (Other)
  Sender: FDA-Public Use
  Company Number: None

PATIENT
  Age: 65 Year
  Sex: Male
  Weight: 96.75 kg

DRUGS (15)
  1. ETOPOSIDE. [Suspect]
     Active Substance: ETOPOSIDE
     Indication: HODGKIN^S DISEASE
     Route: 048
     Dates: start: 20180130, end: 20180226
  2. NEULASTA [Suspect]
     Active Substance: PEGFILGRASTIM
     Indication: HODGKIN^S DISEASE
     Route: 058
     Dates: start: 20180115, end: 20180226
  3. LISINOPRIL. [Concomitant]
     Active Substance: LISINOPRIL
  4. ASPIRIN LOW DOSE [Concomitant]
     Active Substance: ASPIRIN
  5. ACYCLOVIR. [Concomitant]
     Active Substance: ACYCLOVIR
  6. ATORVASTATIN [Concomitant]
     Active Substance: ATORVASTATIN
  7. GABAPENTIN. [Concomitant]
     Active Substance: GABAPENTIN
  8. ONDANSETRON [Concomitant]
     Active Substance: ONDANSETRON
  9. MULTI FOR HIM [Concomitant]
  10. METFORMIN [Concomitant]
     Active Substance: METFORMIN HYDROCHLORIDE
  11. DOCUSATE [Concomitant]
     Active Substance: DOCUSATE
  12. LORAZEPAM. [Concomitant]
     Active Substance: LORAZEPAM
  13. ELIQUIS [Concomitant]
     Active Substance: APIXABAN
  14. METOPROLOL. [Concomitant]
     Active Substance: METOPROLOL
  15. PROAIR HFA [Concomitant]
     Active Substance: ALBUTEROL SULFATE

REACTIONS (1)
  - Disease progression [None]
